FAERS Safety Report 10425718 (Version 1)
Quarter: 2014Q3

REPORT INFORMATION
  Report Type: Spontaneous
  Country: SE (occurrence: SE)
  Receive Date: 20140903
  Receipt Date: 20140903
  Transmission Date: 20150326
  Serious: Yes (Other)
  Sender: FDA-Public Use
  Company Number: SE-PFIZER INC-2014240590

PATIENT
  Age: 19 Year
  Sex: Female

DRUGS (4)
  1. GESTRINA [Concomitant]
  2. BRICANYL [Concomitant]
     Active Substance: TERBUTALINE SULFATE
  3. TAZOCIN [Suspect]
     Active Substance: PIPERACILLIN SODIUM\TAZOBACTAM SODIUM
     Dosage: 4 G, 3X/DAY
     Route: 042
     Dates: start: 20140717, end: 20140726
  4. INOLAXOL [Concomitant]

REACTIONS (2)
  - Pharyngeal oedema [Recovered/Resolved]
  - Rash [Recovered/Resolved]

NARRATIVE: CASE EVENT DATE: 20140726
